FAERS Safety Report 7458580-8 (Version None)
Quarter: 2011Q2

REPORT INFORMATION
  Report Type: 
  Country: None (occurrence: None)
  Receive Date: 20110504
  Receipt Date: 20091114
  Transmission Date: 20111010
  Serious: Yes (Hospitalization, Other)
  Sender: FDA-Public Use
  Company Number: US-BAYER-200939444NA

PATIENT
  Age: 51 Year
  Sex: Male
  Weight: 78.458 kg

DRUGS (31)
  1. GENTAMICIN [Concomitant]
  2. CRYOPRECIPITATES [Concomitant]
     Dosage: 100 U, UNK
     Route: 042
     Dates: start: 20050805
  3. INSULIN [INSULIN] [Concomitant]
     Dosage: UNK
     Route: 042
     Dates: start: 20040805
  4. BALSALAZINE DISODIUM [Concomitant]
  5. HALDOL [Concomitant]
  6. VERSED [Concomitant]
     Dosage: 2 MG, UNK
     Route: 042
     Dates: start: 20040726
  7. FRESH FROZEN PLASMA [Concomitant]
     Dosage: 2 U, UNK
     Route: 042
  8. VANCOMYCIN [Concomitant]
     Dosage: 1 G, UNK
     Route: 042
     Dates: start: 20040805
  9. PLATELETS [Concomitant]
     Dosage: 1 U, UNK
     Route: 042
     Dates: start: 20050805
  10. ETOMIDATE [Concomitant]
     Dosage: UNK
     Route: 042
     Dates: start: 20040805
  11. VASOPRESSIN [VASOPRESSIN] [Concomitant]
     Dosage: UNK
     Route: 042
     Dates: start: 20040805
  12. NITROGLYCERIN [Concomitant]
     Dosage: UNK
     Route: 042
     Dates: start: 20040805
  13. TRASYLOL [Suspect]
     Indication: AORTIC VALVE REPLACEMENT
     Dosage: UNK (INITIAL DOSE)
     Route: 042
     Dates: start: 20040805, end: 20040805
  14. TRASYLOL [Suspect]
     Indication: TRICUSPID VALVE REPLACEMENT
     Dosage: UNK (CONTINUOUS INFUSION)
     Route: 042
     Dates: start: 20040805, end: 20040805
  15. LISINOPRIL [Concomitant]
     Dosage: UNK
     Dates: start: 19800101
  16. NIPRIDE [Concomitant]
     Dosage: UNK
     Route: 042
     Dates: start: 20040803
  17. PHENYLEPHRIN [Concomitant]
     Dosage: UNK
     Route: 042
     Dates: start: 20040805
  18. DDAVP [Concomitant]
     Dosage: 24 UNK
     Dates: start: 20040805
  19. PROTAMINE SULFATE [Concomitant]
     Dosage: 200 MG, UNK
     Route: 042
     Dates: start: 20040805
  20. PENICILLIN NOS [Concomitant]
  21. MORPHINE [Concomitant]
  22. VERSED [Concomitant]
     Dosage: 4 MG, UNK
     Route: 042
     Dates: start: 20040805
  23. FENTANYL [Concomitant]
     Dosage: 100 MG, UNK
     Route: 042
     Dates: start: 20040726
  24. FENTANYL [Concomitant]
     Dosage: UNK
     Route: 042
     Dates: start: 20040805
  25. VECURONIUM BROMIDE [Concomitant]
     Dosage: UNK
     Route: 042
     Dates: start: 20040805
  26. HEPARIN [Concomitant]
     Dosage: 3100 U, UNK
     Route: 042
     Dates: start: 20040805
  27. MILRINONE [Concomitant]
     Dosage: UNK
     Route: 042
     Dates: start: 20040805
  28. ATIVAN [Concomitant]
  29. LASIX [Concomitant]
     Dosage: UNK
     Route: 042
     Dates: start: 20040805
  30. VIAGRA [Concomitant]
     Dosage: LONG TERM USE
  31. RED BLOOD CELLS, CONCENTRATED [Concomitant]
     Dosage: 2 U, UNK
     Route: 042
     Dates: start: 20050805

REACTIONS (14)
  - RENAL INJURY [None]
  - ERECTILE DYSFUNCTION [None]
  - STRESS [None]
  - INJURY [None]
  - RENAL FAILURE [None]
  - RENAL IMPAIRMENT [None]
  - PAIN [None]
  - ANXIETY [None]
  - FEAR [None]
  - UNEVALUABLE EVENT [None]
  - CARDIAC FAILURE [None]
  - MULTI-ORGAN FAILURE [None]
  - EMOTIONAL DISTRESS [None]
  - ANHEDONIA [None]
